FAERS Safety Report 18866820 (Version 4)
Quarter: 2022Q1

REPORT INFORMATION
  Report Type: Other
  Country: CA (occurrence: CA)
  Receive Date: 20210208
  Receipt Date: 20220125
  Transmission Date: 20220423
  Serious: Yes (Other)
  Sender: FDA-Public Use
  Company Number: CA-CELLTRION INC.-2021CA001220

PATIENT

DRUGS (25)
  1. RITUXIMAB [Suspect]
     Active Substance: RITUXIMAB
     Indication: Product used for unknown indication
     Route: 065
  2. COSENTYX [Suspect]
     Active Substance: SECUKINUMAB
     Indication: Psoriatic arthropathy
     Dosage: 300 MILLIGRAM, 1 EVERY 1 MONTH
     Route: 058
  3. COSENTYX [Suspect]
     Active Substance: SECUKINUMAB
     Indication: Psoriasis
     Dosage: 300 MILLIGRAM, 1 EVERY 1 MONTH (THERAPY DURATION: 419.0)
     Route: 058
  4. COSENTYX [Suspect]
     Active Substance: SECUKINUMAB
     Indication: Psoriatic arthropathy
     Dosage: 300 MILLIGRAM, 1 EVERY 1 MONTHS (THERAPY DURATION: 419.0)
     Route: 058
  5. COSENTYX [Suspect]
     Active Substance: SECUKINUMAB
     Indication: Psoriasis
  6. METOPROLOL [Suspect]
     Active Substance: METOPROLOL
     Indication: Hypertension
     Dosage: 100 MG, 2 EVERY 1 DAY
     Route: 048
  7. METOPROLOL [Suspect]
     Active Substance: METOPROLOL
     Indication: Arrhythmia
  8. METOPROLOL [Suspect]
     Active Substance: METOPROLOL
     Indication: Hypertension
     Dosage: 100.0 MILLIGRAM, 2 EVERY 1 DAYS
     Route: 048
  9. METOPROLOL [Suspect]
     Active Substance: METOPROLOL
     Indication: Arrhythmia
     Dosage: 2 EVERY 1 DAYS
     Route: 048
  10. MYCOPHENOLATE MOFETIL [Suspect]
     Active Substance: MYCOPHENOLATE MOFETIL
     Indication: Psoriatic arthropathy
     Dosage: 3 DOSAGE FORMS, 2 EVERY 1 DAY
     Route: 048
  11. MYCOPHENOLATE MOFETIL [Suspect]
     Active Substance: MYCOPHENOLATE MOFETIL
     Indication: Psoriatic arthropathy
     Dosage: 3.0 DOSAGE FORM, 2 EVERY 1 DAYS
     Route: 048
  12. SIMPONI [Suspect]
     Active Substance: GOLIMUMAB
     Indication: Psoriasis
     Route: 058
  13. SIMPONI [Suspect]
     Active Substance: GOLIMUMAB
     Indication: Psoriasis
     Route: 058
  14. ACITRETIN [Concomitant]
     Active Substance: ACITRETIN
     Indication: Psoriasis
     Route: 065
  15. ACITRETIN [Concomitant]
     Active Substance: ACITRETIN
     Indication: Psoriasis
     Route: 065
  16. BETAMETHASONE DIPROPIONATE\CALCIPOTRIENE [Concomitant]
     Active Substance: BETAMETHASONE DIPROPIONATE\CALCIPOTRIENE
     Indication: Psoriasis
     Route: 061
  17. DABIGATRAN ETEXILATE MESYLATE [Concomitant]
     Active Substance: DABIGATRAN ETEXILATE MESYLATE
     Indication: Atrial flutter
     Dosage: 150 MG, 2 EVERY 1 DAY
     Route: 048
  18. DABIGATRAN ETEXILATE MESYLATE [Concomitant]
     Active Substance: DABIGATRAN ETEXILATE MESYLATE
     Dosage: 2 EVERY 1 DAYS
     Route: 048
  19. DEXILANT [Concomitant]
     Active Substance: DEXLANSOPRAZOLE
     Indication: Gastrooesophageal reflux disease
     Dosage: 1 EVERY 1 DAY
     Route: 048
  20. DEXILANT [Concomitant]
     Active Substance: DEXLANSOPRAZOLE
     Indication: Gastrooesophageal reflux disease
     Dosage: 1 EVERY 1 DAYS
     Route: 048
  21. DOVONEX [Concomitant]
     Active Substance: CALCIPOTRIENE
     Indication: Psoriasis
     Route: 061
  22. DOVONEX [Concomitant]
     Active Substance: CALCIPOTRIENE
     Indication: Psoriasis
     Route: 061
  23. METHOTREXATE [Concomitant]
     Active Substance: METHOTREXATE
     Indication: Psoriasis
     Dosage: 1 EVERY 1 WEEK
     Route: 048
  24. METHOTREXATE [Concomitant]
     Active Substance: METHOTREXATE
     Indication: Psoriasis
     Dosage: 1 EVERY 1 WEEKS
     Route: 048
  25. PSORALEN [Concomitant]
     Active Substance: PSORALEN
     Indication: Psoriasis
     Route: 061

REACTIONS (5)
  - Balance disorder [Unknown]
  - Polyneuropathy [Unknown]
  - Sensory loss [Unknown]
  - Nervous system disorder [Unknown]
  - Product use in unapproved indication [Unknown]
